FAERS Safety Report 10247911 (Version 1)
Quarter: 2014Q2

REPORT INFORMATION
  Report Type: Spontaneous
  Country: FR (occurrence: FR)
  Receive Date: 20140619
  Receipt Date: 20140619
  Transmission Date: 20141212
  Serious: Yes (Death, Other)
  Sender: FDA-Public Use
  Company Number: FR-BAXTER-2014BAX032802

PATIENT
  Sex: Female

DRUGS (4)
  1. ENDOXAN 50 MG, COMPRIM? ENROB? [Suspect]
     Indication: METASTASES TO CENTRAL NERVOUS SYSTEM
     Route: 048
  2. ENDOXAN 50 MG, COMPRIM? ENROB? [Suspect]
     Indication: METASTASES TO CENTRAL NERVOUS SYSTEM
  3. METHOTREXATE [Suspect]
     Indication: METASTASES TO CENTRAL NERVOUS SYSTEM
     Route: 065
  4. METHOTREXATE [Suspect]
     Indication: METASTASES TO CENTRAL NERVOUS SYSTEM

REACTIONS (3)
  - Metastases to liver [Unknown]
  - Ascites [Unknown]
  - Disease progression [Fatal]
